FAERS Safety Report 13019957 (Version 1)
Quarter: 2016Q4

REPORT INFORMATION
  Report Type: Spontaneous
  Country: US (occurrence: US)
  Receive Date: 20161212
  Receipt Date: 20161212
  Transmission Date: 20170207
  Serious: No
  Sender: FDA-Public Use
  Company Number: US-ROCHE-1818169

PATIENT
  Age: 55 Year
  Sex: Female

DRUGS (1)
  1. ACTEMRA [Suspect]
     Active Substance: TOCILIZUMAB
     Indication: PRODUCT USED FOR UNKNOWN INDICATION
     Dosage: NDC: 50242013801, 162MG/0.9ML
     Route: 058

REACTIONS (3)
  - Feeling abnormal [Unknown]
  - Musculoskeletal stiffness [Unknown]
  - Photopsia [Unknown]

NARRATIVE: CASE EVENT DATE: 20160606
